FAERS Safety Report 5822344-9 (Version None)
Quarter: 2008Q3

REPORT INFORMATION
  Report Type: 
  Country: None (occurrence: None)
  Receive Date: 20080722
  Receipt Date: 20080711
  Transmission Date: 20090109
  Serious: Yes (Hospitalization, Disabling, Other)
  Sender: FDA-Public Use
  Company Number: 2008AP001603

PATIENT
  Age: 50 Year
  Sex: Female

DRUGS (6)
  1. HALOPERIDOL [Suspect]
     Indication: AGITATION
     Dosage: IV
     Route: 042
     Dates: start: 20071023, end: 20071023
  2. HALOPERIDOL [Suspect]
     Indication: AGITATION
     Dosage: IV
     Route: 042
     Dates: start: 20071023, end: 20071023
  3. ALPRAZOLAM [Concomitant]
  4. AMLODIPINE BESYLATE [Concomitant]
  5. HYDROCHLOROTHIAZIDE [Concomitant]
  6. MORPHINE [Concomitant]

REACTIONS (9)
  - ABASIA [None]
  - ARTHRALGIA [None]
  - DRY MOUTH [None]
  - HALLUCINATION [None]
  - INCORRECT ROUTE OF DRUG ADMINISTRATION [None]
  - JOINT SWELLING [None]
  - OEDEMA PERIPHERAL [None]
  - PAIN IN EXTREMITY [None]
  - RHABDOMYOLYSIS [None]
